FAERS Safety Report 12904450 (Version 2)
Quarter: 2016Q4

REPORT INFORMATION
  Report Type: Spontaneous
  Country: JP (occurrence: JP)
  Receive Date: 20161102
  Receipt Date: 20161122
  Transmission Date: 20170207
  Serious: Yes (Other)
  Sender: FDA-Public Use
  Company Number: JP-PFIZER INC-2016505875

PATIENT
  Age: 51 Year
  Sex: Female
  Weight: 48.7 kg

DRUGS (16)
  1. CHAMPIX 0.5MG [Suspect]
     Active Substance: VARENICLINE TARTRATE
     Dosage: 1 MG, 2X/DAY
     Route: 048
     Dates: start: 20160921, end: 20161011
  2. REFLEX [Concomitant]
     Active Substance: MIRTAZAPINE
     Dosage: 15 MG, 1X/DAY
     Route: 048
     Dates: start: 20161111
  3. DIAZEPAM. [Concomitant]
     Active Substance: DIAZEPAM
     Dosage: 5 MG, 1X/DAY
     Route: 048
     Dates: start: 20160915, end: 20160929
  4. DIAZEPAM. [Concomitant]
     Active Substance: DIAZEPAM
     Dosage: 5 MG, 2X/DAY
     Route: 048
     Dates: start: 20160908, end: 20160914
  5. DERMOSOL G [Concomitant]
     Dosage: UNK
     Route: 061
     Dates: start: 20161024
  6. REFLEX [Concomitant]
     Active Substance: MIRTAZAPINE
     Dosage: 15 MG, 2X/DAY
     Route: 048
     Dates: start: 20161025, end: 20161110
  7. FAMOTIDINE OD [Concomitant]
     Active Substance: FAMOTIDINE
     Dosage: 10 MG, 2X/DAY
     Route: 048
     Dates: start: 20160908, end: 20160921
  8. DOMPERIDONE [Concomitant]
     Active Substance: DOMPERIDONE
     Dosage: 10 MG, 3X/DAY
     Route: 048
     Dates: start: 20160908, end: 20160911
  9. BELSOMRA [Concomitant]
     Active Substance: SUVOREXANT
     Dosage: 20 MG, 1X/DAY
     Route: 048
     Dates: start: 20161009
  10. HIBON [Concomitant]
     Active Substance: RIBOFLAVIN
     Dosage: 20 MG, 3X/DAY
     Route: 048
     Dates: start: 20161024
  11. WYPAX [Concomitant]
     Active Substance: LORAZEPAM
     Indication: ANXIETY
     Dosage: 0.5 MG, 2X/DAY
     Route: 048
     Dates: start: 20160908, end: 20160920
  12. RACOL NF [Concomitant]
     Dosage: 2 DF, UNK
     Route: 051
     Dates: start: 20160908, end: 20160913
  13. NITRAZEPAM [Concomitant]
     Active Substance: NITRAZEPAM
     Dosage: 5 MG, 1X/DAY
     Route: 048
     Dates: start: 20161019
  14. CHAMPIX 0.5MG [Suspect]
     Active Substance: VARENICLINE TARTRATE
     Indication: SMOKING CESSATION THERAPY
     Dosage: 0.5 MG, DAILY
     Route: 048
     Dates: start: 20160908, end: 201609
  15. REFLEX [Concomitant]
     Active Substance: MIRTAZAPINE
     Dosage: 15 MG, 1X/DAY
     Route: 048
     Dates: start: 20161018, end: 20161024
  16. WYPAX [Concomitant]
     Active Substance: LORAZEPAM
     Dosage: 5 MG, 1X/DAY
     Route: 048
     Dates: start: 20160921

REACTIONS (6)
  - Fatigue [Unknown]
  - Hot flush [Recovered/Resolved]
  - Hypertension [Recovered/Resolved]
  - Decreased appetite [Recovered/Resolved]
  - Abdominal discomfort [Unknown]
  - Somnolence [Unknown]

NARRATIVE: CASE EVENT DATE: 2016
